FAERS Safety Report 6899075-X (Version None)
Quarter: 2010Q3

REPORT INFORMATION
  Report Type: 
  Country: None (occurrence: None)
  Receive Date: 20100802
  Receipt Date: 20071226
  Transmission Date: 20110219
  Serious: Yes (Other)
  Sender: FDA-Public Use
  Company Number: US-PFIZER INC-2007108511

PATIENT
  Sex: Male
  Weight: 72.727 kg

DRUGS (4)
  1. LYRICA [Suspect]
     Route: 048
     Dates: start: 20070901, end: 20071201
  2. GABAPENTIN [Suspect]
     Route: 048
     Dates: start: 20060101
  3. ANTIHYPERTENSIVES [Concomitant]
     Route: 048
  4. VITAMINS [Concomitant]
     Route: 048

REACTIONS (5)
  - ANAEMIA [None]
  - FEELING ABNORMAL [None]
  - FEELING COLD [None]
  - PRURITUS [None]
  - URTICARIA [None]
